FAERS Safety Report 5835018-5 (Version None)
Quarter: 2008Q3

REPORT INFORMATION
  Report Type: 
  Country: None (occurrence: None)
  Receive Date: 20080806
  Receipt Date: 20080731
  Transmission Date: 20090109
  Serious: Yes (Hospitalization)
  Sender: FDA-Public Use
  Company Number: US-BRISTOL-MYERS SQUIBB COMPANY-14284061

PATIENT
  Age: 71 Year
  Sex: Male
  Weight: 59 kg

DRUGS (4)
  1. CETUXIMAB [Suspect]
     Indication: COLON CANCER
     Dosage: FIRST COURSE START AT 14MAY08
     Route: 042
     Dates: start: 20080611, end: 20080611
  2. FLUOROURACIL [Suspect]
     Indication: COLON CANCER
     Route: 042
     Dates: start: 20080611, end: 20080611
  3. LEUCOVORIN CALCIUM [Suspect]
     Indication: COLON CANCER
     Route: 042
     Dates: start: 20080611, end: 20080611
  4. ELOXATIN [Suspect]
     Indication: COLON CANCER
     Route: 042
     Dates: start: 20080611, end: 20080611

REACTIONS (1)
  - COLITIS [None]
